FAERS Safety Report 7424247-5 (Version None)
Quarter: 2011Q2

REPORT INFORMATION
  Report Type: 
  Country: None (occurrence: None)
  Receive Date: 20110419
  Receipt Date: 20110404
  Transmission Date: 20111010
  Serious: Yes (Death, Life-Threatening, Hospitalization)
  Sender: FDA-Public Use
  Company Number: US-JNJFOC-20110202252

PATIENT
  Sex: Female
  Weight: 117.48 kg

DRUGS (15)
  1. LASIX [Concomitant]
  2. QUALAQUIN [Concomitant]
  3. SPIRONOLACTONE [Concomitant]
  4. CELEXA [Concomitant]
  5. FOLIC ACID [Concomitant]
  6. URSODIOL [Concomitant]
  7. LACTULOSE [Concomitant]
  8. SULFASALAZINE [Concomitant]
  9. HYDROXYZINE [Concomitant]
  10. PROPRANOLOL [Concomitant]
  11. FOSAMAX [Concomitant]
  12. PERCOCET [Concomitant]
     Indication: PAIN
  13. PANTOPRAZOLE [Concomitant]
  14. REMICADE [Suspect]
     Indication: PRODUCT USED FOR UNKNOWN INDICATION
     Route: 042
  15. IMURAN [Concomitant]

REACTIONS (13)
  - FALL [None]
  - RENAL FAILURE [None]
  - ASCITES [None]
  - ENTEROCOCCAL INFECTION [None]
  - STREPTOCOCCAL INFECTION [None]
  - DEATH [None]
  - CHOLANGITIS SCLEROSING [None]
  - HEPATIC CIRRHOSIS [None]
  - ILEUS [None]
  - COMPRESSION FRACTURE [None]
  - HEPATIC FAILURE [None]
  - SEPSIS [None]
  - URINARY TRACT INFECTION [None]
